FAERS Safety Report 8556881-3 (Version None)
Quarter: 2012Q3

REPORT INFORMATION
  Report Type: 
  Country: None (occurrence: None)
  Receive Date: 20120801
  Receipt Date: 20120730
  Transmission Date: 20120928
  Serious: No
  Sender: FDA-Public Use
  Company Number: US-PFIZER INC-2012185491

PATIENT
  Sex: Female
  Weight: 104 kg

DRUGS (6)
  1. PROBENECID [Concomitant]
     Indication: GOUT
     Dosage: 500 MG, 2X/DAY
  2. METFORMIN [Concomitant]
     Indication: DIABETES MELLITUS
     Dosage: 1000 MG, 2X/DAY
  3. GLIMEPIRIDE [Concomitant]
     Indication: DIABETES MELLITUS
     Dosage: 4 MG, 2X/DAY
  4. LYRICA [Suspect]
     Dosage: 300 MG, 2X/DAY
     Dates: end: 20100101
  5. ALLOPURINOL [Concomitant]
     Indication: GOUT
     Dosage: 300 MG,DAILY
  6. LYRICA [Suspect]
     Indication: NEUROPATHY PERIPHERAL
     Dosage: 200 MG, DAILY
     Dates: start: 20080701

REACTIONS (4)
  - INSOMNIA [None]
  - EATING DISORDER [None]
  - MALAISE [None]
  - RESTLESSNESS [None]
